FAERS Safety Report 5255551-7 (Version None)
Quarter: 2007Q1

REPORT INFORMATION
  Report Type: 
  Country: None (occurrence: None)
  Receive Date: 20070305
  Receipt Date: 20070302
  Transmission Date: 20070707
  Serious: Yes (Other)
  Sender: FDA-Public Use
  Company Number: NLWYE421130JAN07

PATIENT
  Sex: Female

DRUGS (1)
  1. SIROLIMUS [Suspect]
     Indication: RENAL TRANSPLANT
     Dosage: UNKNOWN

REACTIONS (1)
  - MALIGNANT MELANOMA [None]
